FAERS Safety Report 18288731 (Version 1)
Quarter: 2020Q3

REPORT INFORMATION
  Report Type: Spontaneous
  Country: US (occurrence: US)
  Receive Date: 20200920
  Receipt Date: 20200920
  Transmission Date: 20201103
  Serious: No
  Sender: FDA-Public Use
  Company Number: None

PATIENT
  Age: 33 Year
  Sex: Female
  Weight: 117 kg

DRUGS (10)
  1. VITAMIN D [Concomitant]
     Active Substance: VITAMIN D NOS
  2. VITAMIN B12 [Concomitant]
     Active Substance: CYANOCOBALAMIN
  3. LEXAPRO [Concomitant]
     Active Substance: ESCITALOPRAM OXALATE
  4. FISH OIL [Concomitant]
     Active Substance: FISH OIL
  5. ELDERBERRY [Concomitant]
     Active Substance: HERBALS
  6. LISINOPRIL. [Concomitant]
     Active Substance: LISINOPRIL
  7. HYDROCHLOROTHIAZIDE. [Concomitant]
     Active Substance: HYDROCHLOROTHIAZIDE
  8. BUPROPION XL 150 MG [Suspect]
     Active Substance: BUPROPION
     Indication: DEPRESSION
     Dosage: ?          QUANTITY:2 TABLET(S);?
     Route: 048
     Dates: start: 20200826, end: 20200918
  9. VITAMIN C [Concomitant]
     Active Substance: ASCORBIC ACID
  10. MAGNESIUM [Concomitant]
     Active Substance: MAGNESIUM

REACTIONS (9)
  - Insomnia [None]
  - Headache [None]
  - Drug ineffective [None]
  - Hypertension [None]
  - Product substitution issue [None]
  - Condition aggravated [None]
  - Tearfulness [None]
  - Negative thoughts [None]
  - Chest pain [None]

NARRATIVE: CASE EVENT DATE: 20200831
